FAERS Safety Report 17803554 (Version 3)
Quarter: 2020Q3

REPORT INFORMATION
  Report Type: Spontaneous
  Country: GB (occurrence: GB)
  Receive Date: 20200519
  Receipt Date: 20200706
  Transmission Date: 20201102
  Serious: Yes (Life-Threatening, Hospitalization, Other)
  Sender: FDA-Public Use
  Company Number: GB-PFIZER INC-2020189706

PATIENT
  Age: 34 Year
  Sex: Female
  Weight: 70 kg

DRUGS (10)
  1. PARACETAMOL [Concomitant]
     Active Substance: ACETAMINOPHEN
     Indication: PAIN
     Dosage: 1 G, 4X/DAY PRN
     Dates: start: 20200507
  2. CITALOPRAM [Concomitant]
     Active Substance: CITALOPRAM HYDROBROMIDE
     Indication: DEPRESSION
     Dosage: 20 MG, DAILY
     Dates: start: 20200410
  3. DIFFLAM [Concomitant]
     Active Substance: BENZYDAMINE HYDROCHLORIDE
     Indication: MUCOSAL INFLAMMATION
     Dosage: PRN
     Dates: start: 20200507
  4. SODIUM CHLORIDE. [Suspect]
     Active Substance: SODIUM CHLORIDE
  5. MORPHINE [Concomitant]
     Active Substance: MORPHINE
     Indication: PAIN
     Dosage: 10 MG, AS NEEDED
     Dates: start: 20200507
  6. METHOTREXATE SODIUM. [Suspect]
     Active Substance: METHOTREXATE SODIUM
     Dosage: 21500 MG, EVERY 5 WEEKS, 4 HOUR INFUSION; TOTAL CHEMO CYCLE LENGTH = 4 DAYS
     Dates: start: 20200504
  7. TINZAPARIN [Concomitant]
     Active Substance: TINZAPARIN
     Indication: DEEP VEIN THROMBOSIS
     Dosage: 12000 UNITS, DAILY
     Dates: start: 20200208
  8. METHOTREXATE SODIUM. [Suspect]
     Active Substance: METHOTREXATE SODIUM
     Dosage: 23900 MG IN 1000 ML NACL
  9. GELCLAIR [Concomitant]
     Indication: MUCOSAL INFLAMMATION
     Dosage: PRN
     Dates: start: 20200507
  10. OXETACAINE [Concomitant]
     Active Substance: OXETHAZAINE
     Indication: MUCOSAL INFLAMMATION
     Dosage: PRN
     Dates: start: 20200507

REACTIONS (5)
  - Visual impairment [Unknown]
  - Intracranial pressure increased [Unknown]
  - Headache [Unknown]
  - Leukoencephalopathy [Recovering/Resolving]
  - Intraocular pressure increased [Unknown]

NARRATIVE: CASE EVENT DATE: 20200507
